FAERS Safety Report 5389073-X (Version None)
Quarter: 2007Q3

REPORT INFORMATION
  Report Type: 
  Country: None (occurrence: None)
  Receive Date: 20070717
  Receipt Date: 20070706
  Transmission Date: 20080115
  Serious: Yes (Hospitalization)
  Sender: FDA-Public Use
  Company Number: US-JNJFOC-20070701896

PATIENT
  Sex: Female
  Weight: 59.88 kg

DRUGS (9)
  1. DURAGESIC-100 [Suspect]
     Indication: PAIN
     Dosage: 100 UG/HR AND 25 UG/HR PATCHES
     Route: 062
  2. NEXIUM [Concomitant]
     Route: 048
  3. GLUCATROL [Concomitant]
     Indication: DIABETES MELLITUS
     Route: 048
  4. CARDIZEM [Concomitant]
     Indication: CARDIAC DISORDER
     Route: 048
  5. ATICAN [Concomitant]
     Indication: CARDIAC DISORDER
     Route: 048
  6. SYNTHROID [Concomitant]
     Indication: THYROID DISORDER
     Route: 048
  7. PREDNISONE [Concomitant]
     Route: 048
  8. CELEBREX [Concomitant]
     Route: 048
  9. LIPITOR [Concomitant]
     Indication: BLOOD CHOLESTEROL
     Route: 048

REACTIONS (5)
  - ARTHRALGIA [None]
  - BONE DISORDER [None]
  - DRUG WITHDRAWAL SYNDROME [None]
  - GAIT DISTURBANCE [None]
  - INFECTION [None]
